FAERS Safety Report 5248577-0 (Version None)
Quarter: 2007Q1

REPORT INFORMATION
  Report Type: 
  Country: None (occurrence: None)
  Receive Date: 20070227
  Receipt Date: 20070215
  Transmission Date: 20070707
  Serious: Yes (Other)
  Sender: FDA-Public Use
  Company Number: US-PFIZER INC-2007013663

PATIENT
  Sex: Male
  Weight: 79.4 kg

DRUGS (1)
  1. CHANTIX [Suspect]
     Indication: EX-SMOKER

REACTIONS (5)
  - ABNORMAL DREAMS [None]
  - MIDDLE INSOMNIA [None]
  - NAUSEA [None]
  - PRESYNCOPE [None]
  - RED BLOOD CELL COUNT INCREASED [None]
